FAERS Safety Report 11112614 (Version 1)
Quarter: 2015Q2

REPORT INFORMATION
  Report Type: Spontaneous
  Country: US (occurrence: US)
  Receive Date: 20150514
  Receipt Date: 20150514
  Transmission Date: 20150821
  Serious: No
  Sender: FDA-Public Use
  Company Number: US-BIOGENIDEC-2015BI062704

PATIENT
  Age: 59 Year
  Sex: Female

DRUGS (20)
  1. IBUPROFEN. [Concomitant]
     Active Substance: IBUPROFEN
  2. KLONOPIN [Concomitant]
     Active Substance: CLONAZEPAM
  3. NEURONTIN [Concomitant]
     Active Substance: GABAPENTIN
  4. ROBAXIN [Concomitant]
     Active Substance: METHOCARBAMOL
  5. AVONEX [Suspect]
     Active Substance: INTERFERON BETA-1A
     Indication: MULTIPLE SCLEROSIS
     Route: 030
  6. LIPITOR [Concomitant]
     Active Substance: ATORVASTATIN CALCIUM
  7. TRAMADOL [Concomitant]
     Active Substance: TRAMADOL
  8. TRICOR [Concomitant]
     Active Substance: FENOFIBRATE
  9. DOXEPIN HCL [Concomitant]
     Active Substance: DOXEPIN HYDROCHLORIDE
  10. HYDROXYCHLOROQUINE SULFATE. [Concomitant]
     Active Substance: HYDROXYCHLOROQUINE SULFATE
  11. MOBIC [Concomitant]
     Active Substance: MELOXICAM
  12. VITAMIN B12 [Concomitant]
     Active Substance: CYANOCOBALAMIN
  13. FOLIC ACID. [Concomitant]
     Active Substance: FOLIC ACID
  14. PLAQUENIL [Concomitant]
     Active Substance: HYDROXYCHLOROQUINE SULFATE
  15. BUSPIRONE HCL [Concomitant]
     Active Substance: BUSPIRONE HYDROCHLORIDE
  16. ESTRACE [Concomitant]
     Active Substance: ESTRADIOL
  17. MIRAPEX [Concomitant]
     Active Substance: PRAMIPEXOLE DIHYDROCHLORIDE
  18. PROZAC [Concomitant]
     Active Substance: FLUOXETINE HYDROCHLORIDE
  19. SYNTHROID [Concomitant]
     Active Substance: LEVOTHYROXINE SODIUM
  20. POTASSIUM CHLORIDE ER [Concomitant]
     Active Substance: POTASSIUM CHLORIDE

REACTIONS (2)
  - Malaise [Unknown]
  - Feeling abnormal [Unknown]
